FAERS Safety Report 12949399 (Version 1)
Quarter: 2016Q4

REPORT INFORMATION
  Report Type: Spontaneous
  Country: US (occurrence: US)
  Receive Date: 20161116
  Receipt Date: 20161116
  Transmission Date: 20170207
  Serious: Yes (Hospitalization)
  Sender: FDA-Public Use
  Company Number: None

PATIENT
  Age: 74 Year
  Sex: Female
  Weight: 39.8 kg

DRUGS (2)
  1. ABRAXANE [Suspect]
     Active Substance: PACLITAXEL
     Indication: FALLOPIAN TUBE CANCER METASTATIC
     Dosage: 170 MG (DOSE LEVEL 1) DAYS 1, 8, 15 IV
     Route: 042
     Dates: start: 20160822
  2. BEVACIZUMAB (50 MG/M2/PER DAY [Suspect]
     Active Substance: BEVACIZUMAB
     Dosage: 68 MG (DOSE LEVEL 1) DAYS 1, 8, 15 IV
     Route: 042
     Dates: start: 20161103

REACTIONS (4)
  - Cough [None]
  - Pneumonia [None]
  - Asthenia [None]
  - Productive cough [None]

NARRATIVE: CASE EVENT DATE: 20161111
